FAERS Safety Report 7529948-6 (Version None)
Quarter: 2011Q2

REPORT INFORMATION
  Report Type: 
  Country: None (occurrence: None)
  Receive Date: 20110607
  Receipt Date: 20110606
  Transmission Date: 20111010
  Serious: Yes (Other)
  Sender: FDA-Public Use
  Company Number: GB-AMGEN GMBH-UK144933

PATIENT
  Age: 72 Year
  Sex: Male

DRUGS (9)
  1. ARANESP [Suspect]
     Dosage: 150 A?G, QWK
     Route: 058
     Dates: start: 20041103, end: 20050627
  2. ARANESP [Suspect]
     Indication: MYELODYSPLASTIC SYNDROME
     Dosage: 150 A?G, QWK
     Route: 058
     Dates: start: 20041103, end: 20050627
  3. ARANESP [Suspect]
     Dosage: 150 A?G, QWK
     Route: 058
     Dates: start: 20041103, end: 20050627
  4. ALFUZOSIN HCL [Concomitant]
     Dosage: 10 MG, QD
     Route: 048
  5. ARANESP [Suspect]
     Dosage: 150 A?G, QWK
     Route: 058
     Dates: start: 20041103, end: 20050627
  6. FINASTERIDE [Concomitant]
     Dosage: 5 MG, QD
     Route: 048
  7. ARANESP [Suspect]
     Dosage: 150 A?G, QWK
     Route: 058
     Dates: start: 20041103, end: 20050627
  8. ASPIRIN [Concomitant]
     Dosage: 75 MG, QD
     Route: 048
  9. SIMVASTATIN [Concomitant]
     Dosage: 40 MG, QD
     Route: 048

REACTIONS (3)
  - APLASIA PURE RED CELL [None]
  - ANTI-ERYTHROPOIETIN ANTIBODY POSITIVE [None]
  - HAEMOGLOBIN DECREASED [None]
